FAERS Safety Report 20189211 (Version 3)
Quarter: 2022Q1

REPORT INFORMATION
  Report Type: Spontaneous
  Country: US (occurrence: US)
  Receive Date: 20211215
  Receipt Date: 20220203
  Transmission Date: 20220423
  Serious: Yes (Hospitalization)
  Sender: FDA-Public Use
  Company Number: US-SA-SAC20211210001187

PATIENT
  Age: 78 Year
  Sex: Male

DRUGS (27)
  1. DUPIXENT [Suspect]
     Active Substance: DUPILUMAB
     Indication: Asthma
     Dosage: 300 MG, QOW
     Route: 058
     Dates: start: 20210430
  2. ALPRAZOLAM [Concomitant]
     Active Substance: ALPRAZOLAM
  3. ALVESCO [Concomitant]
     Active Substance: CICLESONIDE
  4. ASACOL HD [Concomitant]
     Active Substance: MESALAMINE
  5. ATROVENT HFA [Concomitant]
     Active Substance: IPRATROPIUM BROMIDE
  6. CYMBALTA [Concomitant]
     Active Substance: DULOXETINE HYDROCHLORIDE
  7. CYTOMEL [Concomitant]
     Active Substance: LIOTHYRONINE SODIUM
  8. IRBESARTAN [Concomitant]
     Active Substance: IRBESARTAN
     Indication: Hypertension
  9. LAMOTRIGINE [Concomitant]
     Active Substance: LAMOTRIGINE
  10. LUTEIN [TOCOPHERYL ACETATE;XANTOFYL;ZEAXANTHIN] [Concomitant]
  11. PANTOPRAZOLE [Concomitant]
     Active Substance: PANTOPRAZOLE
  12. VENTOLIN HFA [Concomitant]
     Active Substance: ALBUTEROL SULFATE
  13. VENTOLIN HFA [Concomitant]
     Active Substance: ALBUTEROL SULFATE
  14. VERAPAMIL [Concomitant]
     Active Substance: VERAPAMIL HYDROCHLORIDE
  15. VITAMIN E [Concomitant]
     Active Substance: .ALPHA.-TOCOPHEROL
  16. VRAYLAR [Concomitant]
     Active Substance: CARIPRAZINE
  17. ZYRTEC [Concomitant]
     Active Substance: CETIRIZINE HYDROCHLORIDE
  18. OXCARBAZEPINE [Concomitant]
     Active Substance: OXCARBAZEPINE
  19. OXCARBAZEPINE [Concomitant]
     Active Substance: OXCARBAZEPINE
  20. MESALAMINE [Concomitant]
     Active Substance: MESALAMINE
  21. ZYRTEC [Concomitant]
     Active Substance: CETIRIZINE HYDROCHLORIDE
  22. LEVOCETIRIZINE;MONTELUKAST [Concomitant]
  23. LIFITEGRAST [Concomitant]
     Active Substance: LIFITEGRAST
  24. METHYLPHENIDATE [Concomitant]
     Active Substance: METHYLPHENIDATE
  25. LUTEIN [Concomitant]
     Active Substance: LUTEIN
  26. DULOXETINE [Concomitant]
     Active Substance: DULOXETINE
  27. ALBUTEROL [Concomitant]
     Active Substance: ALBUTEROL

REACTIONS (1)
  - Foot fracture [Not Recovered/Not Resolved]

NARRATIVE: CASE EVENT DATE: 20211112
